FAERS Safety Report 12938668 (Version 4)
Quarter: 2017Q1

REPORT INFORMATION
  Report Type: Spontaneous
  Country: US (occurrence: US)
  Receive Date: 20161115
  Receipt Date: 20170120
  Transmission Date: 20170428
  Serious: No
  Sender: FDA-Public Use
  Company Number: US-PFIZER INC-2016523853

PATIENT
  Age: 51 Year
  Sex: Female

DRUGS (35)
  1. CRANBERRY. [Concomitant]
     Active Substance: CRANBERRY
     Dosage: 1 DF, 1X/DAY (AT NIGHT)
  2. SODIUM FLUORIDE. [Concomitant]
     Active Substance: SODIUM FLUORIDE
     Dosage: UNK (1 AT NIGHT)
  3. SENOKOT [Concomitant]
     Active Substance: SENNOSIDES
     Dosage: 1 DF, 1X/DAY (1 AT NIGHT)
  4. CELEBREX [Suspect]
     Active Substance: CELECOXIB
     Dosage: 100 MG, 2X/DAY
  5. BENADRYL [Concomitant]
     Active Substance: DIPHENHYDRAMINE HYDROCHLORIDE
     Dosage: UNK UNK, DAILY (2-3 PER DAY)
  6. VITAMIN B COMPLEX [Concomitant]
     Active Substance: CYANOCOBALAMIN\DEXPANTHENOL\NIACINAMIDE\PYRIDOXINE HYDROCHLORIDE\RIBOFLAVIN 5^-PHOSPHATE SODIUM\THIAMINE HYDROCHLORIDE\VITAMIN B COMPLEX
     Dosage: UNK UNK, AS NEEDED (2-3 DROPS)
  7. CLONIDINE. [Concomitant]
     Active Substance: CLONIDINE
     Dosage: 58.08 UG, UNK (EVERY 4-6 WEEKS)
  8. CLARITIN [Concomitant]
     Active Substance: LORATADINE
     Dosage: 10 MG, UNK (X1)
  9. MECLIZINE [Concomitant]
     Active Substance: MECLIZINE HYDROCHLORIDE
     Dosage: 25 MG, 3X/DAY
  10. PROZAC [Concomitant]
     Active Substance: FLUOXETINE HYDROCHLORIDE
     Dosage: 40 MG, UNK (X 2)
  11. AMBIEN [Concomitant]
     Active Substance: ZOLPIDEM TARTRATE
     Dosage: 10 MG, UNK (X1)
  12. EFFEXOR [Concomitant]
     Active Substance: VENLAFAXINE HYDROCHLORIDE
     Dosage: 150 MG, 1X/DAY
  13. SALINE [Concomitant]
     Active Substance: SODIUM CHLORIDE
     Dosage: 2 DF, 1X/DAY (2 EACH AT NIGHT)
     Route: 045
  14. LIQUID D3 [Concomitant]
     Dosage: UNK UNK, AS NEEDED (1 TSP)
  15. CELESTONE [Concomitant]
     Active Substance: BETAMETHASONE
     Indication: LIMB DISCOMFORT
     Dosage: UNK UNK, AS NEEDED
  16. ESTRADIOL. [Suspect]
     Active Substance: ESTRADIOL
     Dosage: 0.1 MG, UNK
  17. RELPAX [Concomitant]
     Active Substance: ELETRIPTAN HYDROBROMIDE
     Indication: MIGRAINE
     Dosage: 40 MG, AS NEEDED
  18. XANAX [Concomitant]
     Active Substance: ALPRAZOLAM
     Dosage: 0.5 MG, 3X/DAY
  19. VITAMIN B12 [Concomitant]
     Active Substance: CYANOCOBALAMIN
     Indication: METABOLIC SURGERY
     Dosage: UNK (X1)
  20. NEURONTIN [Concomitant]
     Active Substance: GABAPENTIN
     Dosage: 600 MG, 4X/DAY
  21. ALBUTEROL. [Concomitant]
     Active Substance: ALBUTEROL
     Dosage: UNK (UP TO 1 PER MONTH) (2.5 MG/3ML )
     Route: 055
  22. LYRICA [Suspect]
     Active Substance: PREGABALIN
     Dosage: 75 MG (DIRECTIONS: X5) (X5)
  23. PREMARIN [Concomitant]
     Active Substance: ESTROGENS, CONJUGATED
     Dosage: 0.625 MG, 1X/DAY
  24. IMITREX [Concomitant]
     Active Substance: SUMATRIPTAN SUCCINATE
     Dosage: 100 MG, UNK
  25. SYSTANE BALANCE [Concomitant]
     Active Substance: PROPYLENE GLYCOL
     Dosage: 1 GTT, 1X/DAY (1 EACH PER MORNING)
  26. SWIM-EAR [Concomitant]
     Active Substance: ISOPROPYL ALCOHOL
     Dosage: 1 GTT, 1X/DAY (1 EACH AT NIGHT)
  27. BOTOX [Concomitant]
     Active Substance: ONABOTULINUMTOXINA
     Indication: MIGRAINE
     Dosage: UNK (EVERY 12 WEEKS)
  28. PROVENTIL [Concomitant]
     Active Substance: ALBUTEROL
     Dosage: UNK (UP TO 1 PER MONTH )
     Route: 055
  29. ACIDOPHILUS [Concomitant]
     Active Substance: LACTOBACILLUS ACIDOPHILUS
     Dosage: 1 DF, 1X/DAY (NIGHT)
  30. TIGER BALM [Concomitant]
     Active Substance: CAMPHOR (SYNTHETIC)\CAPSICUM OLEORESIN\MENTHOL\METHYL SALICYLATE
     Dosage: UNK
     Route: 061
  31. PERI-COLACE [Concomitant]
     Active Substance: CASANTHRANOL\DOCUSATE SODIUM
     Dosage: 1 DF, 1X/DAY (1 AT NIGHT)
  32. FLUTICASONE. [Concomitant]
     Active Substance: FLUTICASONE
     Dosage: 50 UG, UNK
     Route: 045
  33. BUPIVACAINE. [Concomitant]
     Active Substance: BUPIVACAINE
     Dosage: UNK (7.391 INFUSION PAIN PUMP /EVERY 4-6 WEEKS)
  34. ROBAXIN [Concomitant]
     Active Substance: METHOCARBAMOL
     Dosage: 750 MG, 4X/DAY
  35. PRILOSEC [Concomitant]
     Active Substance: OMEPRAZOLE MAGNESIUM
     Dosage: 40 MG, UNK (X 1)

REACTIONS (1)
  - Pain [Unknown]
